FAERS Safety Report 24886324 (Version 1)
Quarter: 2025Q1

REPORT INFORMATION
  Report Type: Spontaneous
  Country: US (occurrence: US)
  Receive Date: 20250126
  Receipt Date: 20250126
  Transmission Date: 20250409
  Serious: No
  Sender: SANDOZ
  Company Number: US-SANDOZ-SDZ2025US004681

PATIENT
  Sex: Female

DRUGS (1)
  1. COSYNTROPIN [Suspect]
     Active Substance: COSYNTROPIN
     Indication: Product used for unknown indication
     Route: 065

REACTIONS (1)
  - Dermatitis [Unknown]

NARRATIVE: CASE EVENT DATE: 20241201
